FAERS Safety Report 5926627-3 (Version None)
Quarter: 2008Q4

REPORT INFORMATION
  Report Type: 
  Country: None (occurrence: None)
  Receive Date: 20081022
  Receipt Date: 20081016
  Transmission Date: 20090506
  Serious: Yes (Hospitalization)
  Sender: FDA-Public Use
  Company Number: B0541009A

PATIENT
  Age: 53 Year
  Sex: Female
  Weight: 45 kg

DRUGS (3)
  1. LAPATINIB [Suspect]
     Indication: BREAST CANCER
     Dosage: 1250MG PER DAY
     Route: 048
     Dates: start: 20080725
  2. DOCETAXEL [Suspect]
     Indication: BREAST CANCER
     Dosage: 121MG PER DAY
     Route: 042
     Dates: start: 20080725
  3. UNSPECIFIED DRUG [Concomitant]
     Route: 042
     Dates: start: 20081006, end: 20081007

REACTIONS (2)
  - FEBRILE NEUTROPENIA [None]
  - PYREXIA [None]
